FAERS Safety Report 4453574-9 (Version None)
Quarter: 2004Q3

REPORT INFORMATION
  Report Type: 
  Country: None (occurrence: None)
  Receive Date: 20040903
  Receipt Date: 20040317
  Transmission Date: 20050211
  Serious: Yes (Other)
  Sender: FDA-Public Use
  Company Number: 2003184165US

PATIENT
  Age: 30 Year
  Sex: Female
  Weight: 104.3 kg

DRUGS (3)
  1. CYTOTEC [Suspect]
     Indication: LABOUR INDUCTION
     Dosage: 25 MICROGRAMS, , VAGINAL
     Route: 067
     Dates: start: 20011017, end: 20011017
  2. OXYTOCIN 10 USP UNITS IN DEXTROSE 5% [Suspect]
     Indication: LABOUR INDUCTION
     Dosage: 6 MILLIUNITS.MINUTE
     Dates: start: 20011017
  3. SYNTHROID [Suspect]

REACTIONS (1)
  - UTERINE RUPTURE [None]
